FAERS Safety Report 25043643 (Version 2)
Quarter: 2025Q1

REPORT INFORMATION
  Report Type: Spontaneous
  Country: GB (occurrence: GB)
  Receive Date: 20250306
  Receipt Date: 20250313
  Transmission Date: 20250409
  Serious: Yes (Other)
  Sender: TEVA
  Company Number: GB-CRESCENT PHARMA LIMITED-2025-GB-02051

PATIENT
  Age: 80 Year
  Sex: Male

DRUGS (1)
  1. MONTELUKAST [Suspect]
     Active Substance: MONTELUKAST
     Indication: Product used for unknown indication
     Route: 065

REACTIONS (5)
  - Haemorrhage subcutaneous [Unknown]
  - Aggression [Unknown]
  - Somnolence [Unknown]
  - Epistaxis [Unknown]
  - Headache [Unknown]
